FAERS Safety Report 17925019 (Version 1)
Quarter: 2020Q2

REPORT INFORMATION
  Report Type: Spontaneous
  Country: CN (occurrence: CN)
  Receive Date: 20200622
  Receipt Date: 20200622
  Transmission Date: 20200714
  Serious: Yes (Death)
  Sender: FDA-Public Use
  Company Number: CN-ALLERGAN-2023497US

PATIENT

DRUGS (1)
  1. MEMANTINE HCL - BP [Suspect]
     Active Substance: MEMANTINE
     Indication: PRODUCT USED FOR UNKNOWN INDICATION
     Dosage: 10 MG
     Route: 065

REACTIONS (6)
  - Respiratory failure [Fatal]
  - Respiratory tract infection [Fatal]
  - Screaming [Unknown]
  - Abnormal behaviour [Unknown]
  - Sleep disorder [Unknown]
  - Irritability [Unknown]
